FAERS Safety Report 7389423-9 (Version None)
Quarter: 2011Q2

REPORT INFORMATION
  Report Type: 
  Country: None (occurrence: None)
  Receive Date: 20110401
  Receipt Date: 20110323
  Transmission Date: 20111010
  Serious: Yes (Hospitalization)
  Sender: FDA-Public Use
  Company Number: US-JNJFOC-20110311838

PATIENT
  Age: 70 Year
  Sex: Male

DRUGS (6)
  1. HALOPERIDOL [Suspect]
     Route: 030
  2. LORAZEPAM [Suspect]
     Route: 030
  3. HALOPERIDOL [Suspect]
     Route: 030
  4. LORAZEPAM [Suspect]
     Indication: AGITATION
     Route: 030
  5. HALOPERIDOL [Suspect]
     Indication: AGGRESSION
     Route: 030
  6. HALOPERIDOL [Suspect]
     Indication: AGITATION
     Route: 030

REACTIONS (2)
  - SEDATION [None]
  - DISORIENTATION [None]
